FAERS Safety Report 10253068 (Version 1)
Quarter: 2014Q2

REPORT INFORMATION
  Report Type: Spontaneous
  Country: US (occurrence: None)
  Receive Date: 20140619
  Receipt Date: 20140619
  Transmission Date: 20141212
  Serious: Yes (Death)
  Sender: FDA-Public Use
  Company Number: None

PATIENT
  Age: 55 Year
  Sex: Female
  Weight: 120.9 kg

DRUGS (1)
  1. QSYMIA [Suspect]
     Indication: OBESITY
     Dosage: QSYMIS  7.5/46

REACTIONS (1)
  - Death [None]
